FAERS Safety Report 16974560 (Version 2)
Quarter: 2020Q1

REPORT INFORMATION
  Report Type: Spontaneous
  Country: US (occurrence: US)
  Receive Date: 20191030
  Receipt Date: 20200129
  Transmission Date: 20200409
  Serious: Yes (Hospitalization)
  Sender: FDA-Public Use
  Company Number: US-VERTEX PHARMACEUTICALS-2019-010427

PATIENT
  Age: 12 Year
  Sex: Male
  Weight: 46 kg

DRUGS (16)
  1. PREVACID [Concomitant]
     Active Substance: LANSOPRAZOLE
     Dosage: 1 DOSAGE FORM, BID
     Route: 048
     Dates: start: 20190618
  2. QVAR [Concomitant]
     Active Substance: BECLOMETHASONE DIPROPIONATE
     Dosage: 2 PUFFS, BID
     Route: 055
  3. SODIUM CHLORIDE. [Concomitant]
     Active Substance: SODIUM CHLORIDE
     Dosage: UNK UNK, BID
     Dates: start: 20190618
  4. SYMDEKO [Suspect]
     Active Substance: IVACAFTOR\TEZACAFTOR
     Indication: CYSTIC FIBROSIS
     Dosage: TEZACAFTOR 100MG/IVACAFTOR 150MG AM; IVACAFTOR 150MG PM
     Route: 048
     Dates: start: 20190403
  5. TOBRAMYCIN. [Concomitant]
     Active Substance: TOBRAMYCIN
     Indication: INFECTIVE PULMONARY EXACERBATION OF CYSTIC FIBROSIS
     Dosage: 5 MILLILITER, BID
     Route: 048
     Dates: start: 20191028
  6. MIRALAX [Concomitant]
     Active Substance: POLYETHYLENE GLYCOL 3350
     Dosage: 17 GRAM, QD
     Route: 048
     Dates: start: 20190911
  7. CREON [Concomitant]
     Active Substance: PANCRELIPASE AMYLASE\PANCRELIPASE LIPASE\PANCRELIPASE PROTEASE
     Dosage: 8 CAPS WITH MEALS; 4 CAPS WITH SNACKS
     Route: 048
     Dates: start: 20191011
  8. VITAMIN D [COLECALCIFEROL] [Concomitant]
     Active Substance: CHOLECALCIFEROL
     Dosage: UNK
     Dates: start: 20190806
  9. VENTOLIN HFA [Concomitant]
     Active Substance: ALBUTEROL SULFATE
     Dosage: 2 PUFFS, TID
     Route: 055
     Dates: start: 20190618
  10. COLISTIMETHATE SODIQUE PANPHARMA [Concomitant]
     Dosage: 150 MG/ 4 ML, BID FOR 28 DAYS ON, ALTERNATE WITH TOBI
     Route: 055
     Dates: start: 20191028
  11. TOBRAMYCIN. [Concomitant]
     Active Substance: TOBRAMYCIN
     Dosage: UNK
     Route: 042
  12. NOVOLIN N [Concomitant]
     Active Substance: INSULIN HUMAN
     Dosage: UNK
     Route: 058
     Dates: start: 20191028
  13. URSODIOL. [Concomitant]
     Active Substance: URSODIOL
     Dosage: 2.5 MILLILITER, BID
     Route: 048
     Dates: start: 20190618
  14. PULMOZYME [Concomitant]
     Active Substance: DORNASE ALFA
     Dosage: 2.5 MG, BID
     Route: 055
  15. AZITHROMYCIN ANHYDROUS. [Concomitant]
     Active Substance: AZITHROMYCIN ANHYDROUS
     Dosage: 1 DOSAGE FORM  EVERY M, W, F
     Route: 048
     Dates: start: 20190619
  16. PEPTAMEN [Concomitant]

REACTIONS (1)
  - Infective pulmonary exacerbation of cystic fibrosis [Recovered/Resolved]

NARRATIVE: CASE EVENT DATE: 20191014
